FAERS Safety Report 5386046-8 (Version None)
Quarter: 2007Q3

REPORT INFORMATION
  Report Type: 
  Country: None (occurrence: None)
  Receive Date: 20070710
  Receipt Date: 20070628
  Transmission Date: 20080115
  Serious: Yes (Hospitalization)
  Sender: FDA-Public Use
  Company Number: 235333K07USA

PATIENT
  Age: 60 Year
  Sex: Female
  Weight: 78.0187 kg

DRUGS (9)
  1. REBIF [Suspect]
     Indication: MULTIPLE SCLEROSIS
     Dosage: 44 MCG, 3 IN 1 WEEKS, SUBCUTANEOUS
     Route: 058
     Dates: start: 20050921
  2. QUINAPRIL HCL [Concomitant]
  3. LIPITOR [Concomitant]
  4. TRAZODONE HCL [Concomitant]
  5. OXYTROL [Concomitant]
  6. PROTONIX [Concomitant]
  7. ZOMIG [Concomitant]
  8. PREMARIN [Concomitant]
  9. SINGULAIR                       (MONTELUKAST /01362601) [Concomitant]

REACTIONS (9)
  - ACUTE RESPIRATORY DISTRESS SYNDROME [None]
  - CHEST PAIN [None]
  - DYSPHAGIA [None]
  - HYPOAESTHESIA [None]
  - OESOPHAGEAL SPASM [None]
  - RED BLOOD CELL COUNT DECREASED [None]
  - SEPSIS [None]
  - URINARY TRACT INFECTION [None]
  - WHITE BLOOD CELL COUNT DECREASED [None]
